FAERS Safety Report 21381807 (Version 1)
Quarter: 2022Q3

REPORT INFORMATION
  Report Type: Spontaneous
  Country: US (occurrence: US)
  Receive Date: 20220927
  Receipt Date: 20220927
  Transmission Date: 20221026
  Serious: Yes (Life-Threatening, Hospitalization, Other)
  Sender: FDA-Public Use
  Company Number: US-AMGEN-USASP2022163812

PATIENT
  Sex: Female

DRUGS (1)
  1. PROLIA [Suspect]
     Active Substance: DENOSUMAB
     Indication: Osteoporosis postmenopausal
     Dosage: 60 MILLIGRAM, Q6MO
     Route: 058

REACTIONS (5)
  - Hip fracture [Recovering/Resolving]
  - Pathogen resistance [Recovering/Resolving]
  - Hiatus hernia [Recovering/Resolving]
  - Gastrooesophageal reflux disease [Recovering/Resolving]
  - Urinary tract infection [Recovering/Resolving]
